FAERS Safety Report 10890060 (Version 2)
Quarter: 2015Q2

REPORT INFORMATION
  Report Type: Spontaneous
  Country: GB (occurrence: GB)
  Receive Date: 20150305
  Receipt Date: 20150424
  Transmission Date: 20150821
  Serious: Yes (Other)
  Sender: FDA-Public Use
  Company Number: GB-AMGEN-GBRSP2015019908

PATIENT
  Age: 48 Year
  Sex: Female

DRUGS (1)
  1. ENBREL [Suspect]
     Active Substance: ETANERCEPT
     Indication: PRODUCT USED FOR UNKNOWN INDICATION
     Dosage: 50 MG, WEEKLY
     Route: 065
     Dates: start: 20141125

REACTIONS (7)
  - Malaise [Unknown]
  - Arthralgia [Unknown]
  - Generalised erythema [Unknown]
  - Uterine disorder [Unknown]
  - Lethargy [Unknown]
  - Feeling of body temperature change [Unknown]
  - Pain [Unknown]
